FAERS Safety Report 21625012 (Version 2)
Quarter: 2023Q4

REPORT INFORMATION
  Report Type: Spontaneous
  Country: US (occurrence: US)
  Receive Date: 20221122
  Receipt Date: 20231201
  Transmission Date: 20240109
  Serious: Yes (Hospitalization, Other)
  Sender: FDA-Public Use
  Company Number: US-AUROBINDO-AUR-APL-2022-048874

PATIENT
  Age: 7 Year
  Sex: Male
  Weight: 37 kg

DRUGS (6)
  1. DEXTROMETHORPHAN HYDROBROMIDE\DOXYLAMINE SUCCINATE [Suspect]
     Active Substance: DEXTROMETHORPHAN HYDROBROMIDE\DOXYLAMINE SUCCINATE
     Indication: Oropharyngeal pain
     Dosage: UNK
     Route: 065
  2. DIPHENHYDRAMINE [Concomitant]
     Active Substance: DIPHENHYDRAMINE
     Indication: Hypersensitivity
     Dosage: 37 MILLIGRAM
     Route: 042
  3. DIPHENHYDRAMINE [Concomitant]
     Active Substance: DIPHENHYDRAMINE
     Indication: Anaphylactic reaction
  4. MIDAZOLAM [Concomitant]
     Active Substance: MIDAZOLAM
     Indication: Agitation
     Dosage: 1.5 MILLIGRAM
     Route: 030
  5. EPINEPHRINE [Concomitant]
     Active Substance: EPINEPHRINE
     Indication: Anaphylactic reaction
     Dosage: 0.3 MILLIGRAM
     Route: 030
  6. DEXAMETHASONE [Concomitant]
     Active Substance: DEXAMETHASONE
     Indication: Anaphylactic reaction
     Dosage: 12 MILLIGRAM
     Route: 065

REACTIONS (2)
  - Delirium [Recovered/Resolved]
  - Intentional product misuse [Unknown]
